FAERS Safety Report 10364683 (Version 2)
Quarter: 2014Q3

REPORT INFORMATION
  Report Type: Spontaneous
  Country: BR (occurrence: BR)
  Receive Date: 20140806
  Receipt Date: 20140919
  Transmission Date: 20150326
  Serious: Yes (Other)
  Sender: FDA-Public Use
  Company Number: BR-ROCHE-1445277

PATIENT
  Sex: Male
  Weight: 78 kg

DRUGS (2)
  1. VALIUM [Suspect]
     Active Substance: DIAZEPAM
     Indication: FEELING OF RELAXATION
  2. VALIUM [Suspect]
     Active Substance: DIAZEPAM
     Indication: INSOMNIA
     Dosage: 5 OR 10 MG WHEN REQUIRED, APPROXIMATELY 3X/WEEK
     Route: 048
     Dates: start: 2000

REACTIONS (5)
  - Leukaemia [Recovered/Resolved]
  - Hypertension [Unknown]
  - Blood uric acid abnormal [Unknown]
  - Product quality issue [Unknown]
  - Drug ineffective [Unknown]

NARRATIVE: CASE EVENT DATE: 2007
